FAERS Safety Report 24411451 (Version 3)
Quarter: 2024Q4

REPORT INFORMATION
  Report Type: Report from Study
  Country: US (occurrence: US)
  Receive Date: 20241008
  Receipt Date: 20241204
  Transmission Date: 20250114
  Serious: Yes (Hospitalization)
  Sender: BOEHRINGER INGELHEIM
  Company Number: US-BoehringerIngelheim-2024-BI-054578

PATIENT
  Age: 82 Year
  Sex: Male

DRUGS (2)
  1. OFEV [Suspect]
     Active Substance: NINTEDANIB
     Indication: Interstitial lung disease
     Route: 048
  2. Eliqus [Concomitant]
     Indication: Product used for unknown indication

REACTIONS (5)
  - Dementia [Not Recovered/Not Resolved]
  - Cerebral haemorrhage [Unknown]
  - Delirium [Not Recovered/Not Resolved]
  - Ammonia increased [Not Recovered/Not Resolved]
  - Aggression [Unknown]

NARRATIVE: CASE EVENT DATE: 20240101
